FAERS Safety Report 17804313 (Version 1)
Quarter: 2020Q2

REPORT INFORMATION
  Report Type: Spontaneous
  Country: FI (occurrence: FI)
  Receive Date: 20200519
  Receipt Date: 20200519
  Transmission Date: 20200714
  Serious: Yes (Other)
  Sender: FDA-Public Use
  Company Number: FI-MYLANLABS-2020M1048678

PATIENT
  Age: 3 Year
  Sex: Female

DRUGS (2)
  1. AMOXICILLIN/CLAVULANIC ACID [Suspect]
     Active Substance: AMOXICILLIN\CLAVULANIC ACID
     Indication: SWELLING
     Dosage: UNK
  2. CLINDAMYCIN. [Suspect]
     Active Substance: CLINDAMYCIN
     Indication: SWELLING
     Dosage: UNK

REACTIONS (5)
  - Product use in unapproved indication [Unknown]
  - Swelling [Unknown]
  - Condition aggravated [Unknown]
  - Off label use [Unknown]
  - Atypical mycobacterial infection [Unknown]
